FAERS Safety Report 13251569 (Version 1)
Quarter: 2017Q1

REPORT INFORMATION
  Report Type: Spontaneous
  Country: US (occurrence: US)
  Receive Date: 20170220
  Receipt Date: 20170220
  Transmission Date: 20170428
  Serious: No
  Sender: FDA-Public Use
  Company Number: US-TEVA-707891USA

PATIENT
  Age: 55 Year
  Sex: Female

DRUGS (2)
  1. PROGESTERONE. [Suspect]
     Active Substance: PROGESTERONE
     Indication: MENOPAUSE
     Dates: start: 20160803, end: 20160928
  2. ESTROGENS [Concomitant]
     Active Substance: ESTROGENS
     Route: 062

REACTIONS (3)
  - Trichorrhexis [Unknown]
  - Alopecia [Unknown]
  - Feeling of despair [Unknown]
